FAERS Safety Report 6062806-5 (Version None)
Quarter: 2009Q1

REPORT INFORMATION
  Report Type: 
  Country: None (occurrence: None)
  Receive Date: 20090202
  Receipt Date: 20090202
  Transmission Date: 20090719
  Serious: Yes (Disabling)
  Sender: FDA-Public Use
  Company Number: None

PATIENT
  Age: 75 Year
  Sex: Male
  Weight: 78.0187 kg

DRUGS (1)
  1. LEVAQUIN [Suspect]
     Indication: INCISION SITE COMPLICATION
     Dosage: 500MG 1 A DAY PO
     Route: 048
     Dates: start: 20090125, end: 20090129

REACTIONS (5)
  - ABASIA [None]
  - DEPRESSION [None]
  - MYALGIA [None]
  - PAIN IN EXTREMITY [None]
  - TENDONITIS [None]
